FAERS Safety Report 7438532-4 (Version None)
Quarter: 2011Q2

REPORT INFORMATION
  Report Type: 
  Country: None (occurrence: None)
  Receive Date: 20110426
  Receipt Date: 20110422
  Transmission Date: 20111010
  Serious: Yes (Death, Other)
  Sender: FDA-Public Use
  Company Number: PHHY2011US16700

PATIENT
  Sex: Male

DRUGS (7)
  1. OXYCODONE [Concomitant]
     Dosage: 5 MG, QD
     Route: 048
  2. ROCALTROL [Concomitant]
     Dosage: UNK
  3. ELAVIL [Concomitant]
     Dosage: UNK
  4. AFINITOR [Suspect]
     Indication: PROSTATE CANCER
     Dosage: 5 MG, DAILY
     Route: 048
     Dates: start: 20110120
  5. ALBUTEROL [Concomitant]
     Dosage: UNK
  6. DILTIAZEM [Concomitant]
     Dosage: 240 UNK, QD
     Route: 048
  7. ALLOTROPAT [Concomitant]
     Dosage: UNK

REACTIONS (2)
  - DEATH [None]
  - NEOPLASM MALIGNANT [None]
